FAERS Safety Report 6762153-X (Version None)
Quarter: 2010Q2

REPORT INFORMATION
  Report Type: 
  Country: None (occurrence: None)
  Receive Date: 20100609
  Receipt Date: 20100225
  Transmission Date: 20101027
  Serious: No
  Sender: FDA-Public Use
  Company Number: US-KINGPHARMUSA00001-K201000232

PATIENT
  Sex: Female
  Weight: 113.38 kg

DRUGS (7)
  1. EMBEDA [Suspect]
     Indication: ABDOMINAL PAIN
     Dosage: 20 MG, BID
     Route: 048
     Dates: start: 20100118, end: 20100125
  2. EMBEDA [Suspect]
     Indication: PELVIC PAIN
  3. LEXAPRO [Concomitant]
  4. LABETALOL HCL [Concomitant]
  5. CLONAZEPAM [Concomitant]
  6. ELAVIL [Concomitant]
  7. METFORMIN HCL [Concomitant]

REACTIONS (1)
  - HEADACHE [None]
